FAERS Safety Report 7811276-2 (Version None)
Quarter: 2011Q4

REPORT INFORMATION
  Report Type: 
  Country: None (occurrence: None)
  Receive Date: 20111012
  Receipt Date: 20111012
  Transmission Date: 20120403
  Serious: Yes (Life-Threatening)
  Sender: FDA-Public Use
  Company Number: None

PATIENT
  Age: 38 Year
  Sex: Male
  Weight: 81.6475 kg

DRUGS (2)
  1. CLONAZEPAM [Suspect]
     Indication: DEPRESSION
     Dosage: 0.5-1 MG BID PO
     Route: 048
  2. CLONAZEPAM [Suspect]
     Indication: ANXIETY
     Dosage: 0.5-1 MG BID PO
     Route: 048

REACTIONS (1)
  - SUICIDAL IDEATION [None]
